FAERS Safety Report 25117030 (Version 1)
Quarter: 2025Q1

REPORT INFORMATION
  Report Type: Report from Study
  Country: DE (occurrence: DE)
  Receive Date: 20250325
  Receipt Date: 20250325
  Transmission Date: 20250408
  Serious: Yes (Hospitalization)
  Sender: ROCHE
  Company Number: DE-ROCHE-3293909

PATIENT
  Age: 16 Year
  Sex: Female
  Weight: 53 kg

DRUGS (4)
  1. EVRYSDI [Suspect]
     Active Substance: RISDIPLAM
     Indication: Spinal muscular atrophy
     Dosage: LAST DOSE WAS 23/NOV/2022, 16/AUG/2023, 20/JAN/2025
     Route: 048
     Dates: start: 20210629
  2. ISOTRETINOIN [Concomitant]
     Active Substance: ISOTRETINOIN
     Dates: start: 202305
  3. CHOLECALCIFEROL [Concomitant]
     Active Substance: CHOLECALCIFEROL
     Dates: start: 2015
  4. CHOLECALCIFEROL [Concomitant]
     Active Substance: CHOLECALCIFEROL
     Dates: start: 202008

REACTIONS (6)
  - COVID-19 [Recovered/Resolved]
  - Acne [Recovered/Resolved]
  - Abdominal pain lower [Recovered/Resolved]
  - Crohn^s disease [Recovered/Resolved]
  - Diarrhoea [Recovered/Resolved]
  - Campylobacter infection [Recovered/Resolved]

NARRATIVE: CASE EVENT DATE: 20220411
